FAERS Safety Report 5922589-3 (Version None)
Quarter: 2008Q4

REPORT INFORMATION
  Report Type: 
  Country: None (occurrence: None)
  Receive Date: 20081017
  Receipt Date: 20081006
  Transmission Date: 20090506
  Serious: Yes (Hospitalization, Other)
  Sender: FDA-Public Use
  Company Number: AR-ROCHE-588219

PATIENT
  Age: 21 Year
  Sex: Female
  Weight: 50 kg

DRUGS (8)
  1. ROACCUTAN [Suspect]
     Indication: ACNE
     Dosage: OVERDOSE.
     Route: 048
     Dates: start: 20080922
  2. ROACCUTAN [Suspect]
     Route: 048
     Dates: start: 20080701
  3. ROACCUTAN [Suspect]
     Route: 048
     Dates: start: 20080922, end: 20080923
  4. DIPIRONE [Concomitant]
  5. DIPIRONE [Concomitant]
     Dosage: DRUG REPORTED AS: DIPIRONE (NOVALGINE). OVERDOSE.
     Dates: start: 20080922
  6. IBUPROFEN [Concomitant]
  7. IBUPROFEN [Concomitant]
     Dosage: OVERDOSE.
     Dates: start: 20080922
  8. RISPERIDONA [Concomitant]
     Indication: DEPRESSION
     Dates: start: 20080901

REACTIONS (5)
  - DEPRESSED MOOD [None]
  - DEPRESSION [None]
  - MOOD ALTERED [None]
  - SUICIDAL IDEATION [None]
  - SUICIDE ATTEMPT [None]
